FAERS Safety Report 23779967 (Version 1)
Quarter: 2024Q2

REPORT INFORMATION
  Report Type: Spontaneous
  Country: PL (occurrence: PL)
  Receive Date: 20240424
  Receipt Date: 20240424
  Transmission Date: 20240716
  Serious: Yes (Death, Hospitalization)
  Sender: FDA-Public Use
  Company Number: PL-ROCHE-3336804

PATIENT
  Age: 70 Year
  Sex: Female
  Weight: 67 kg

DRUGS (12)
  1. CARBOPLATIN [Suspect]
     Active Substance: CARBOPLATIN
     Indication: Small cell lung cancer extensive stage
     Dosage: 658.25 MG, EVERY 3 WEEKS
     Route: 042
     Dates: start: 20230201
  2. CARBOPLATIN [Suspect]
     Active Substance: CARBOPLATIN
     Dosage: 643 MG
     Route: 042
     Dates: start: 20230404
  3. ETOPOSIDE [Suspect]
     Active Substance: ETOPOSIDE
     Indication: Small cell lung cancer extensive stage
     Dosage: 177 MG
     Route: 042
     Dates: start: 20230201
  4. ETOPOSIDE [Suspect]
     Active Substance: ETOPOSIDE
     Dosage: 175 MG
     Route: 042
     Dates: start: 20230406
  5. METOCLOPRAMIDE [Concomitant]
     Active Substance: METOCLOPRAMIDE
     Indication: Nausea
     Dosage: UNK
     Dates: start: 20230317, end: 20230323
  6. NEBILENIN [Concomitant]
     Indication: Hypertension
     Dosage: UNK
     Dates: start: 20221221
  7. ELIQUIS [Concomitant]
     Active Substance: APIXABAN
     Dosage: UNK
     Dates: start: 20221230, end: 20230401
  8. PEGFILGRASTIM [Concomitant]
     Active Substance: PEGFILGRASTIM
     Dosage: 6 MG, EVERY 3 WEEKS
     Dates: start: 20230204, end: 20230407
  9. POTASSIUM CHLORIDE [Concomitant]
     Active Substance: POTASSIUM CHLORIDE
     Dosage: UNK
     Dates: start: 20221221
  10. ATEZOLIZUMAB [Concomitant]
     Active Substance: ATEZOLIZUMAB
     Indication: Small cell lung cancer extensive stage
     Dosage: 1200 MG, EVERY 3 WEEKS
     Dates: start: 20230201
  11. ONDANSETRON [Concomitant]
     Active Substance: ONDANSETRON
     Dosage: UNK
     Dates: start: 20230201, end: 20230406
  12. TORSEMIDE [Concomitant]
     Active Substance: TORSEMIDE
     Indication: Hypertension
     Dosage: UNK
     Dates: start: 20221221

REACTIONS (2)
  - Death [Fatal]
  - Anaemia [Recovered/Resolved]

NARRATIVE: CASE EVENT DATE: 20230421
